FAERS Safety Report 19063226 (Version 1)
Quarter: 2021Q1

REPORT INFORMATION
  Report Type: Spontaneous
  Country: GB (occurrence: GB)
  Receive Date: 20210326
  Receipt Date: 20210326
  Transmission Date: 20210420
  Serious: Yes (Death)
  Sender: FDA-Public Use
  Company Number: GB-ASTRAZENECA-2021A194990

PATIENT
  Age: 78 Year
  Sex: Female

DRUGS (16)
  1. DOMPERIDONE [Concomitant]
     Active Substance: DOMPERIDONE
     Dosage: 10, UNKNOWN
  2. RAMIPRIL. [Concomitant]
     Active Substance: RAMIPRIL
     Dosage: 7.5, UNKNOWN
  3. ADCAL?D3 [Concomitant]
     Active Substance: CALCIUM CARBONATE\CHOLECALCIFEROL
  4. ASPIRIN. [Concomitant]
     Active Substance: ASPIRIN
     Dosage: 75, UNKNOWN
  5. VENTOLIN [Concomitant]
     Active Substance: ALBUTEROL SULFATE
  6. DOMPERIDONE MALEATE [Suspect]
     Active Substance: DOMPERIDONE MALEATE
     Indication: GASTROOESOPHAGEAL REFLUX DISEASE
     Dosage: 10MG TDS
     Route: 048
     Dates: start: 202009, end: 20210313
  7. CARBOCYSTEINE [Concomitant]
     Active Substance: CARBOCYSTEINE
  8. ATORVASTATIN [Concomitant]
     Active Substance: ATORVASTATIN
     Dosage: 20, UNKNOWN
  9. FRUSEMIDE [Concomitant]
     Active Substance: FUROSEMIDE
     Dosage: 20, UNKNOWN
  10. HYDROXOCOBALAMINUM [Concomitant]
  11. PREDNISOLONE. [Concomitant]
     Active Substance: PREDNISOLONE
  12. OMEPRAZOLE. [Suspect]
     Active Substance: OMEPRAZOLE
     Indication: DYSPEPSIA
     Dosage: 20MG, UNKNOWN
     Route: 048
     Dates: start: 201910, end: 20210313
  13. FOSTAIR [Concomitant]
     Active Substance: BECLOMETHASONE\FORMOTEROL
  14. SALBUTAMOL [Concomitant]
     Active Substance: ALBUTEROL
  15. CALCIUM AND VITAMIN D [Concomitant]
     Active Substance: CALCIUM\VITAMIN D
  16. VITAMIN B12 [Concomitant]
     Active Substance: CYANOCOBALAMIN

REACTIONS (2)
  - Ventricular fibrillation [Fatal]
  - Hypomagnesaemia [Fatal]

NARRATIVE: CASE EVENT DATE: 20200908
